FAERS Safety Report 24079134 (Version 1)
Quarter: 2024Q3

REPORT INFORMATION
  Report Type: Spontaneous
  Country: US (occurrence: None)
  Receive Date: 20240710
  Receipt Date: 20240710
  Transmission Date: 20241017
  Serious: No
  Sender: Public
  Company Number: None

PATIENT
  Age: 75 Year
  Sex: Female
  Weight: 90 kg

DRUGS (17)
  1. MOUNJARO [Suspect]
     Active Substance: TIRZEPATIDE
     Indication: Obesity
     Dosage: 1 INJECTION WEEKLY SUBCUTANEOUS?
     Route: 058
     Dates: start: 20240301, end: 20240708
  2. ZEPBOUND [Suspect]
     Active Substance: TIRZEPATIDE
  3. REPATHA [Concomitant]
     Active Substance: EVOLOCUMAB
  4. SYNTHROID [Concomitant]
     Active Substance: LEVOTHYROXINE SODIUM
  5. irbesarten [Concomitant]
  6. LEXAPRO [Concomitant]
  7. LORATADINE [Concomitant]
  8. CETIRIZINE [Concomitant]
  9. OMEPRAZOLE [Concomitant]
  10. exetimibe [Concomitant]
  11. METOPROLOL [Concomitant]
  12. Aimoviq [Concomitant]
  13. DEVICE [Concomitant]
     Active Substance: DEVICE
  14. RED GINSENG [Concomitant]
     Active Substance: ASIAN GINSENG
  15. multivitamin [Concomitant]
  16. CALTRATE WITH VITAMIN D [Concomitant]
     Active Substance: CALCIUM CARBONATE\CHOLECALCIFEROL
  17. Cholesteroff Plus [Concomitant]

REACTIONS (1)
  - Back pain [None]

NARRATIVE: CASE EVENT DATE: 20240331
